FAERS Safety Report 7364480-4 (Version None)
Quarter: 2011Q1

REPORT INFORMATION
  Report Type: 
  Country: None (occurrence: None)
  Receive Date: 20110321
  Receipt Date: 20110311
  Transmission Date: 20110831
  Serious: Yes (Hospitalization, Other)
  Sender: FDA-Public Use
  Company Number: IT-TEVA-266821ISR

PATIENT
  Sex: Male
  Weight: 84 kg

DRUGS (14)
  1. LENALIDOMIDE (CC-5013) [Suspect]
     Route: 048
     Dates: start: 20101222, end: 20110119
  2. LENALIDOMIDE (CC-5013) [Suspect]
     Route: 048
     Dates: start: 20110202
  3. TORASEMIDE SODIUM [Concomitant]
     Indication: ARRHYTHMIA SUPRAVENTRICULAR
     Route: 048
     Dates: start: 20110105
  4. DEXAMETHASONE [Suspect]
     Dates: start: 20101222, end: 20110119
  5. LENALIDOMIDE (CC-5013) [Suspect]
     Indication: MULTIPLE MYELOMA
     Route: 048
     Dates: start: 20101020
  6. ASPIRIN [Concomitant]
     Indication: THROMBOSIS PROPHYLAXIS
     Route: 048
     Dates: start: 20101020
  7. SULFAMETHOXAZOLE AND TRIMETHOPRIM [Concomitant]
     Indication: ANTIBIOTIC PROPHYLAXIS
     Route: 048
     Dates: start: 20101020
  8. FILGRASTIM [Concomitant]
     Indication: NEUTROPENIA
     Route: 058
     Dates: start: 20101215, end: 20101217
  9. DEXAMETHASONE [Suspect]
     Indication: MULTIPLE MYELOMA
     Dates: start: 20101020
  10. ZOFENOPRIL CALCIUM [Concomitant]
     Indication: HYPERTENSION
     Route: 048
     Dates: start: 20100201
  11. RAMIPRIL [Concomitant]
     Indication: ARRHYTHMIA SUPRAVENTRICULAR
     Route: 048
     Dates: start: 20110105
  12. LANSOPRAZOLE [Concomitant]
     Indication: PROPHYLAXIS AGAINST GASTROINTESTINAL ULCER
     Route: 048
     Dates: start: 20101020
  13. DEXAMETHASONE [Suspect]
     Dates: start: 20100202
  14. ALLOPURINOL [Concomitant]
     Indication: HYPERURICAEMIA
     Route: 048
     Dates: start: 19900101

REACTIONS (3)
  - HYPONATRAEMIA [None]
  - GENERAL PHYSICAL HEALTH DETERIORATION [None]
  - LEFT VENTRICULAR DYSFUNCTION [None]
